FAERS Safety Report 9510060 (Version 1)
Quarter: 2013Q3

REPORT INFORMATION
  Report Type: Spontaneous
  Country: US (occurrence: US)
  Receive Date: 20130909
  Receipt Date: 20130909
  Transmission Date: 20140515
  Serious: No
  Sender: FDA-Public Use
  Company Number: US-BRISTOL-MYERS SQUIBB COMPANY-17135310

PATIENT
  Age: 30 Year
  Sex: Male

DRUGS (4)
  1. ABILIFY TABS 15 MG [Suspect]
     Indication: SCHIZOAFFECTIVE DISORDER
     Dosage: INCREASED TP 25 MG/DAY (ONE 10MG AND ONE 15 MG TABS/DAY) IN EARLY 2009.
     Dates: start: 2005
  2. EFFEXOR [Concomitant]
  3. SIMVASTATIN [Concomitant]
  4. CLONAZEPAM [Concomitant]

REACTIONS (1)
  - Blepharospasm [Not Recovered/Not Resolved]
